FAERS Safety Report 12391677 (Version 1)
Quarter: 2016Q2

REPORT INFORMATION
  Report Type: Report from Study
  Country: GB (occurrence: GB)
  Receive Date: 20160522
  Receipt Date: 20160522
  Transmission Date: 20160815
  Serious: Yes (Other)
  Sender: FDA-Public Use
  Company Number: PHFR2016GB003957

PATIENT

DRUGS (5)
  1. GABAPENTIN. [Concomitant]
     Active Substance: GABAPENTIN
     Indication: PRODUCT USED FOR UNKNOWN INDICATION
     Dosage: UNK
     Route: 065
  2. CARBAMAZEPINE. [Suspect]
     Active Substance: CARBAMAZEPINE
     Indication: NEURALGIA
     Dosage: 200 MG, BID
     Route: 065
     Dates: start: 2014
  3. PARACETAMOL [Concomitant]
     Active Substance: ACETAMINOPHEN
     Indication: PRODUCT USED FOR UNKNOWN INDICATION
     Dosage: UNK
     Route: 065
  4. IBUPROFEN. [Concomitant]
     Active Substance: IBUPROFEN
     Indication: PRODUCT USED FOR UNKNOWN INDICATION
     Dosage: UNK
     Route: 065
  5. VITAMIN D [Concomitant]
     Active Substance: CHOLECALCIFEROL
     Indication: PRODUCT USED FOR UNKNOWN INDICATION
     Dosage: UNK
     Route: 065

REACTIONS (22)
  - Fatigue [Unknown]
  - Sexual dysfunction [Unknown]
  - Urinary retention [Unknown]
  - Miliaria [Unknown]
  - Pain in extremity [Unknown]
  - Paraesthesia [Unknown]
  - Balance disorder [Unknown]
  - Muscle spasms [Unknown]
  - Burning sensation [Unknown]
  - Musculoskeletal pain [Unknown]
  - Anal incontinence [Unknown]
  - Mood swings [Unknown]
  - Euphoric mood [Unknown]
  - Micturition urgency [Unknown]
  - Multiple sclerosis [Unknown]
  - Orgasm abnormal [Unknown]
  - Depressed mood [Unknown]
  - Hypoaesthesia [Unknown]
  - Somnolence [Unknown]
  - Pain [Unknown]
  - Back pain [Unknown]
  - Rotator cuff syndrome [Unknown]
